FAERS Safety Report 14766543 (Version 1)
Quarter: 2018Q2

REPORT INFORMATION
  Report Type: Spontaneous
  Country: IT (occurrence: IT)
  Receive Date: 20180416
  Receipt Date: 20180416
  Transmission Date: 20180711
  Serious: Yes (Other)
  Sender: FDA-Public Use
  Company Number: PHHY2017IT065302

PATIENT
  Age: 72 Year
  Sex: Male

DRUGS (4)
  1. IMATINIB [Suspect]
     Active Substance: IMATINIB
     Indication: GASTROINTESTINAL STROMAL TUMOUR
     Dosage: 400 MG, QD
     Route: 065
     Dates: start: 201301
  2. IMATINIB [Suspect]
     Active Substance: IMATINIB
     Dosage: 800 MG, QD
     Route: 065
  3. IMATINIB [Suspect]
     Active Substance: IMATINIB
     Dosage: 600 MG, QD
     Route: 065
  4. ARTICAINE [Concomitant]
     Active Substance: ARTICAINE
     Indication: ANAESTHESIA PROCEDURE
     Dosage: 1.8 ML, UNK (1:100.000)
     Route: 065

REACTIONS (17)
  - Neck pain [Unknown]
  - Staphylococcal infection [Unknown]
  - Osteonecrosis of jaw [Unknown]
  - Lymphadenopathy [Unknown]
  - Breath odour [Unknown]
  - Salivary hypersecretion [Unknown]
  - Nerve compression [Unknown]
  - Erythema [Unknown]
  - Toothache [Unknown]
  - Tooth fracture [Unknown]
  - Candida infection [Unknown]
  - Escherichia infection [Unknown]
  - Exposed bone in jaw [Unknown]
  - Swelling face [Unknown]
  - Hypoaesthesia oral [Unknown]
  - Pain in jaw [Unknown]
  - Enterococcal infection [Unknown]

NARRATIVE: CASE EVENT DATE: 201404
